FAERS Safety Report 4832553-3 (Version None)
Quarter: 2005Q4

REPORT INFORMATION
  Report Type: 
  Country: None (occurrence: None)
  Receive Date: 20051121
  Receipt Date: 20051111
  Transmission Date: 20060501
  Serious: Yes (Hospitalization)
  Sender: FDA-Public Use
  Company Number: DE-NOVOPROD-248531

PATIENT
  Age: 70 Year
  Sex: Female
  Weight: 90 kg

DRUGS (1)
  1. LEVEMIR [Suspect]
     Indication: INSULIN-REQUIRING TYPE II DIABETES MELLITUS
     Dosage: 18 U, QD
     Route: 058

REACTIONS (4)
  - COLITIS [None]
  - DIARRHOEA HAEMORRHAGIC [None]
  - DIVERTICULITIS [None]
  - EOSINOPHIL COUNT INCREASED [None]
